FAERS Safety Report 7719023-X (Version None)
Quarter: 2011Q3

REPORT INFORMATION
  Report Type: 
  Country: None (occurrence: None)
  Receive Date: 20110830
  Receipt Date: 20110818
  Transmission Date: 20111222
  Serious: Yes (Other)
  Sender: FDA-Public Use
  Company Number: DE-JNJFOC-20110809448

PATIENT
  Sex: Female

DRUGS (4)
  1. VALPROATE SODIUM [Concomitant]
     Route: 065
  2. PALIPERIDONE [Suspect]
     Indication: PRODUCT USED FOR UNKNOWN INDICATION
     Route: 030
  3. ANTIPSYCHOTIC MEDICATION [Suspect]
     Indication: PRODUCT USED FOR UNKNOWN INDICATION
     Route: 048
  4. DIAZEPAM [Concomitant]
     Route: 065

REACTIONS (2)
  - PSYCHOTIC BEHAVIOUR [None]
  - DRUG LEVEL DECREASED [None]
